FAERS Safety Report 19158774 (Version 2)
Quarter: 2021Q4

REPORT INFORMATION
  Report Type: Other
  Country: DE (occurrence: None)
  Receive Date: 20210420
  Receipt Date: 20211105
  Transmission Date: 20220303
  Serious: Yes (Other)
  Sender: FDA-Public Use
  Company Number: DE-ROCHE-2806302

PATIENT

DRUGS (1)
  1. BEVACIZUMAB [Suspect]
     Active Substance: BEVACIZUMAB
     Indication: Glaucoma
     Route: 050

REACTIONS (8)
  - Retinal detachment [Unknown]
  - Atrophy of globe [Unknown]
  - Corneal erosion [Unknown]
  - Off label use [Unknown]
  - Chorioretinal disorder [Unknown]
  - Hyphaema [Unknown]
  - Anterior chamber fibrin [Unknown]
  - Off label use [Unknown]
